FAERS Safety Report 14015521 (Version 3)
Quarter: 2018Q4

REPORT INFORMATION
  Report Type: Spontaneous
  Country: JP (occurrence: JP)
  Receive Date: 20170927
  Receipt Date: 20181003
  Transmission Date: 20190204
  Serious: Yes (Hospitalization, Other)
  Sender: FDA-Public Use
  Company Number: JP-009507513-1704JPN000545J

PATIENT
  Age: 70 Year
  Sex: Female
  Weight: 46 kg

DRUGS (8)
  1. LOXOPROFEN [Concomitant]
     Active Substance: LOXOPROFEN
     Dosage: 3 DF, UNK
     Route: 048
  2. KEYTRUDA [Suspect]
     Active Substance: PEMBROLIZUMAB
     Indication: LUNG ADENOCARCINOMA
     Dosage: 200 MG, Q3W
     Route: 041
     Dates: start: 20170314, end: 20170501
  3. NEXIUM [Concomitant]
     Active Substance: ESOMEPRAZOLE MAGNESIUM
     Dosage: 10 MG, UNK
     Route: 048
  4. CEPHARANTHINE [Concomitant]
     Active Substance: CEPHARANTHINE
     Dosage: 3 MG, UNK
     Route: 048
  5. BETAHISTINE MESYLATE [Concomitant]
     Active Substance: BETAHISTINE MESILATE
     Dosage: 18 MG, UNK
     Route: 048
  6. BROTIZOLAM OD [Concomitant]
     Dosage: 0.25 MG, UNK
     Route: 048
  7. REBAMIPIDE [Concomitant]
     Active Substance: REBAMIPIDE
     Dosage: 3 UNK, UNK
     Route: 048
  8. MAGNESIUM OXIDE (+) MELATONIN [Concomitant]
     Dosage: 990 MG, UNK
     Route: 048

REACTIONS (7)
  - Malaise [Recovering/Resolving]
  - Malignant neoplasm progression [Unknown]
  - Pyrexia [Unknown]
  - Hypothyroidism [Recovering/Resolving]
  - Pyrexia [Recovering/Resolving]
  - Stomatitis [Recovering/Resolving]
  - Malaise [Unknown]

NARRATIVE: CASE EVENT DATE: 20170326
